FAERS Safety Report 20510078 (Version 1)
Quarter: 2022Q1

REPORT INFORMATION
  Report Type: Spontaneous
  Country: CA (occurrence: CA)
  Receive Date: 20220224
  Receipt Date: 20220224
  Transmission Date: 20220423
  Serious: Yes (Other)
  Sender: FDA-Public Use
  Company Number: CA-CELLTRION INC.-2021CA018604

PATIENT

DRUGS (8)
  1. INFLECTRA [Suspect]
     Active Substance: INFLIXIMAB-DYYB
     Indication: Colitis ulcerative
     Dosage: 1000 MG, 0, 2, 6 WEEKS THEN EVERY 8 WEEKS
     Route: 042
     Dates: start: 20170928
  2. INFLECTRA [Suspect]
     Active Substance: INFLIXIMAB-DYYB
     Dosage: 1000 MG, EVERY 6 WEEKS
     Route: 042
     Dates: start: 20180412
  3. INFLECTRA [Suspect]
     Active Substance: INFLIXIMAB-DYYB
     Dosage: 1100 MG, EVERY 6 WEEKS
     Route: 042
     Dates: start: 20190425
  4. INFLECTRA [Suspect]
     Active Substance: INFLIXIMAB-DYYB
     Dosage: 1100 MG, EVERY 6 WEEKS
     Route: 042
     Dates: start: 20211116
  5. INFLECTRA [Suspect]
     Active Substance: INFLIXIMAB-DYYB
     Dosage: 1100 MG, EVERY 6 WEEKS
     Route: 042
     Dates: start: 20211229
  6. INFLECTRA [Suspect]
     Active Substance: INFLIXIMAB-DYYB
     Dosage: 1100 MG, EVERY 6 WEEKS
     Route: 042
     Dates: start: 20220211
  7. PREDNISONE [Concomitant]
     Active Substance: PREDNISONE
     Dosage: 40 MG FOR 10 DAYS AND DECREASING DOSE, FREQUENCY IS UNKNOWN
     Dates: start: 20170918
  8. MESALAMINE [Concomitant]
     Active Substance: MESALAMINE
     Dosage: 1 DF
     Dates: start: 2011

REACTIONS (4)
  - Blood pressure increased [Unknown]
  - Poor quality sleep [Unknown]
  - Body temperature decreased [Unknown]
  - Off label use [Unknown]

NARRATIVE: CASE EVENT DATE: 20180412
